FAERS Safety Report 14268275 (Version 1)
Quarter: 2017Q4

REPORT INFORMATION
  Report Type: Spontaneous
  Country: NL (occurrence: NL)
  Receive Date: 20171211
  Receipt Date: 20171211
  Transmission Date: 20180321
  Serious: Yes (Death, Hospitalization, Other)
  Sender: FDA-Public Use
  Company Number: NL-BAYER-2017-110299

PATIENT
  Age: 43 Year
  Sex: Male

DRUGS (2)
  1. GADOVIST [Suspect]
     Active Substance: GADOBUTROL
     Indication: HYPOTHALAMO-PITUITARY DISORDER
     Dosage: 9 ML, ONCE
     Route: 042
     Dates: start: 20170927, end: 20170927
  2. GADOVIST [Suspect]
     Active Substance: GADOBUTROL
     Indication: NUCLEAR MAGNETIC RESONANCE IMAGING
     Dosage: 16 MMOL, ONCE
     Route: 042
     Dates: start: 20170603, end: 20170603

REACTIONS (7)
  - Myocardial infarction [Unknown]
  - Rash macular [Unknown]
  - Erythema [Unknown]
  - Dermatitis allergic [Recovered/Resolved]
  - Cardiac arrest [Fatal]
  - Urticaria [Unknown]
  - Malaise [Unknown]

NARRATIVE: CASE EVENT DATE: 20170603
